FAERS Safety Report 24241353 (Version 1)
Quarter: 2024Q3

REPORT INFORMATION
  Report Type: Spontaneous
  Country: US (occurrence: US)
  Receive Date: 20240823
  Receipt Date: 20240823
  Transmission Date: 20241017
  Serious: No
  Sender: JOHNSON AND JOHNSON
  Company Number: US-JNJFOC-20240839816

PATIENT
  Age: 71 Year
  Sex: Male
  Weight: 85 kg

DRUGS (4)
  1. RYBREVANT [Suspect]
     Active Substance: AMIVANTAMAB-VMJW
     Indication: Non-small cell lung cancer
     Route: 065
     Dates: start: 20240725
  2. RYBREVANT [Suspect]
     Active Substance: AMIVANTAMAB-VMJW
     Route: 065
     Dates: start: 20240725
  3. CARBOPLATIN [Concomitant]
     Active Substance: CARBOPLATIN
  4. PEMETREXED [Concomitant]
     Active Substance: PEMETREXED

REACTIONS (1)
  - Rash [Not Recovered/Not Resolved]
